FAERS Safety Report 6897158-1 (Version None)
Quarter: 2010Q3

REPORT INFORMATION
  Report Type: 
  Country: None (occurrence: None)
  Receive Date: 20100802
  Receipt Date: 20070502
  Transmission Date: 20110219
  Serious: No
  Sender: FDA-Public Use
  Company Number: US-PFIZER INC-2007014119

PATIENT
  Sex: Female
  Weight: 49 kg

DRUGS (2)
  1. LYRICA [Suspect]
     Indication: TRIGEMINAL NEURALGIA
     Route: 048
     Dates: start: 20061001, end: 20070208
  2. DARVOCET [Concomitant]

REACTIONS (6)
  - DRUG WITHDRAWAL SYNDROME [None]
  - EATING DISORDER [None]
  - HEADACHE [None]
  - INSOMNIA [None]
  - NAUSEA [None]
  - THERAPEUTIC RESPONSE DECREASED [None]
